FAERS Safety Report 4678225-X (Version None)
Quarter: 2005Q2

REPORT INFORMATION
  Report Type: 
  Country: None (occurrence: None)
  Receive Date: 20050601
  Receipt Date: 20050412
  Transmission Date: 20051028
  Serious: Yes (Other)
  Sender: FDA-Public Use
  Company Number: PHFR2005GB01498

PATIENT
  Age: 37 Year
  Sex: Male

DRUGS (4)
  1. ORPHENADRINE [Concomitant]
     Indication: EXTRAPYRAMIDAL DISORDER
     Dosage: 300MG PER DAY
     Route: 048
  2. CLOZARIL [Suspect]
     Indication: SCHIZOPHRENIA
     Dosage: 300MG PER DAY
     Route: 048
     Dates: start: 20041101
  3. CLONAZEPAM [Concomitant]
     Indication: AGGRESSION
     Dosage: 2MG PER DAY
     Route: 048
  4. VALPROATE SODIUM [Concomitant]
     Indication: AGITATION
     Dosage: 1500MG PER DAY
     Route: 048

REACTIONS (4)
  - FALL [None]
  - PALLOR [None]
  - PETIT MAL EPILEPSY [None]
  - SYNCOPE [None]
